FAERS Safety Report 14789079 (Version 1)
Quarter: 2018Q2

REPORT INFORMATION
  Report Type: Spontaneous
  Country: US (occurrence: US)
  Receive Date: 20180423
  Receipt Date: 20180423
  Transmission Date: 20180711
  Serious: Yes (Other)
  Sender: FDA-Public Use
  Company Number: PHHY2018US062794

PATIENT
  Age: 63 Year
  Sex: Female

DRUGS (6)
  1. ACYCLOVIR. [Concomitant]
     Active Substance: ACYCLOVIR
     Indication: PROPHYLAXIS
     Dosage: UNK
     Route: 065
  2. PYRIMETHAMINE [Concomitant]
     Active Substance: PYRIMETHAMINE
     Dosage: 75 MG, QD
     Route: 048
  3. SULFADIAZINE. [Suspect]
     Active Substance: SULFADIAZINE
     Indication: TOXOPLASMOSIS
     Dosage: 1500 MG, Q6H
     Route: 048
  4. LEUCOVORIN. [Concomitant]
     Active Substance: LEUCOVORIN
     Indication: TOXOPLASMOSIS
     Dosage: 25 MG, QD
     Route: 048
  5. ACYCLOVIR. [Concomitant]
     Active Substance: ACYCLOVIR
     Indication: HERPES SIMPLEX
  6. PYRIMETHAMINE [Concomitant]
     Active Substance: PYRIMETHAMINE
     Indication: TOXOPLASMOSIS
     Dosage: 200 MG, QD
     Route: 048

REACTIONS (2)
  - Neutropenia [Unknown]
  - Lymphopenia [Unknown]
